FAERS Safety Report 13737013 (Version 3)
Quarter: 2017Q3

REPORT INFORMATION
  Report Type: Spontaneous
  Country: IT (occurrence: IT)
  Receive Date: 20170710
  Receipt Date: 20170906
  Transmission Date: 20171127
  Serious: Yes (Hospitalization, Other)
  Sender: FDA-Public Use
  Company Number: IT-BIOGEN-2017BI00427567

PATIENT
  Age: 26 Year
  Sex: Female
  Weight: 70 kg

DRUGS (1)
  1. TYSABRI [Suspect]
     Active Substance: NATALIZUMAB
     Indication: RELAPSING-REMITTING MULTIPLE SCLEROSIS
     Route: 042
     Dates: start: 20170330, end: 20170609

REACTIONS (9)
  - Asthenia [Unknown]
  - Hyperbilirubinaemia [Recovered/Resolved]
  - Hepatitis [Unknown]
  - Hypertransaminasaemia [Not Recovered/Not Resolved]
  - Jaundice [Unknown]
  - Pruritus [Unknown]
  - Jaundice [Not Recovered/Not Resolved]
  - Ocular icterus [Unknown]
  - Vomiting [Not Recovered/Not Resolved]

NARRATIVE: CASE EVENT DATE: 20170504
